FAERS Safety Report 8617751 (Version 3)
Quarter: 2014Q2

REPORT INFORMATION
  Report Type: Spontaneous
  Country: FR (occurrence: FR)
  Receive Date: 20120615
  Receipt Date: 20140604
  Transmission Date: 20141212
  Serious: Yes (Hospitalization)
  Sender: FDA-Public Use
  Company Number: FR-VERTEX PHARMACEUTICALS INC.-000000000000000877

PATIENT
  Age: 72 Year
  Sex: Male
  Weight: 66.8 kg

DRUGS (10)
  1. INCIVO [Suspect]
     Indication: HEPATITIS C
     Dosage: 750 MG, TID
     Route: 048
     Dates: start: 20111103, end: 20120125
  2. COPEGUS [Suspect]
     Indication: HEPATITIS C
     Dosage: 1200 MG, QD
     Route: 065
     Dates: start: 20111103
  3. PEGASYS [Suspect]
     Indication: HEPATITIS C
     Dosage: DOSAGE FORM: UNSPECIFIED
     Route: 065
     Dates: start: 20111103
  4. EPOETIN NOS [Suspect]
     Indication: PRODUCT USED FOR UNKNOWN INDICATION
     Dosage: UNK
     Route: 065
  5. EUPANTOL [Suspect]
     Indication: PRODUCT USED FOR UNKNOWN INDICATION
     Dosage: UNK
     Route: 065
  6. LEVOTHYROX [Suspect]
     Indication: HYPOTHYROIDISM
     Dosage: DOSAGE FORM: UNSPECIFIED
     Route: 065
     Dates: start: 19771208
  7. NISISCO [Concomitant]
     Indication: HYPERTENSION
     Dosage: 125 MG, QD
     Dates: start: 1999
  8. ATENOLOL [Concomitant]
     Indication: HYPERTENSION
     Dosage: 50 MG, QD
     Dates: start: 1999
  9. TOCO [Concomitant]
     Indication: INSULIN RESISTANCE
     Dosage: 500 MG, BID
     Dates: start: 2011
  10. DIFFU-K [Concomitant]
     Indication: HYPOKALAEMIA
     Dosage: 600 MG, BID
     Dates: start: 20120131

REACTIONS (1)
  - Pulmonary embolism [Recovered/Resolved]
